FAERS Safety Report 7003183-2 (Version None)
Quarter: 2010Q3

REPORT INFORMATION
  Report Type: 
  Country: None (occurrence: None)
  Receive Date: 20100920
  Receipt Date: 20100430
  Transmission Date: 20110219
  Serious: No
  Sender: FDA-Public Use
  Company Number: US-ASTRAZENECA-2010SE19767

PATIENT
  Age: 43 Year
  Sex: Male
  Weight: 90.3 kg

DRUGS (1)
  1. SEROQUEL [Suspect]
     Indication: BIPOLAR DISORDER
     Route: 048
     Dates: start: 20090101

REACTIONS (7)
  - BLOOD PRESSURE INCREASED [None]
  - DYSARTHRIA [None]
  - HEADACHE [None]
  - HYPOAESTHESIA [None]
  - SWELLING FACE [None]
  - URTICARIA [None]
  - WEIGHT INCREASED [None]
